FAERS Safety Report 10830274 (Version 1)
Quarter: 2015Q1

REPORT INFORMATION
  Report Type: Spontaneous
  Country: BR (occurrence: BR)
  Receive Date: 20150219
  Receipt Date: 20150219
  Transmission Date: 20150721
  Serious: Yes (Other)
  Sender: FDA-Public Use
  Company Number: BR-PFIZER INC-2015058906

PATIENT
  Age: 70 Year
  Sex: Male
  Weight: 89 kg

DRUGS (1)
  1. XALATAN [Suspect]
     Active Substance: LATANOPROST
     Dosage: 1 DROP EACH EYE, 1X/DAY
     Route: 047
     Dates: start: 20140116

REACTIONS (4)
  - Astigmatism [Unknown]
  - Cataract [Unknown]
  - Glaucoma [Unknown]
  - Myopia [Unknown]
